FAERS Safety Report 18764600 (Version 1)
Quarter: 2021Q1

REPORT INFORMATION
  Report Type: Spontaneous
  Country: US (occurrence: US)
  Receive Date: 20210120
  Receipt Date: 20210120
  Transmission Date: 20210419
  Serious: No
  Sender: FDA-Public Use
  Company Number: US-MYLANLABS-2021M1002660

PATIENT
  Age: 16 Year
  Sex: Female
  Weight: 48 kg

DRUGS (5)
  1. PROZAC [Concomitant]
     Active Substance: FLUOXETINE HYDROCHLORIDE
     Dosage: UNK
  2. CLARITIN [Concomitant]
     Active Substance: LORATADINE
     Dosage: UNK
  3. SCOPOLAMINE TRANSDERMAL SYSTEM [Suspect]
     Active Substance: SCOPOLAMINE
     Indication: VERTIGO
     Dosage: 1 DOSAGE FORM, Q3D
     Route: 062
     Dates: start: 20210109, end: 20210110
  4. FLOVENT [Concomitant]
     Active Substance: FLUTICASONE PROPIONATE
     Dosage: UNK
  5. SCOPOLAMINE TRANSDERMAL SYSTEM [Suspect]
     Active Substance: SCOPOLAMINE
     Indication: MOTION SICKNESS

REACTIONS (2)
  - Vision blurred [Recovering/Resolving]
  - Mydriasis [Recovering/Resolving]

NARRATIVE: CASE EVENT DATE: 20210110
